FAERS Safety Report 4782924-9 (Version None)
Quarter: 2005Q3

REPORT INFORMATION
  Report Type: 
  Country: None (occurrence: None)
  Receive Date: 20050914
  Receipt Date: 20050531
  Transmission Date: 20060218
  Serious: Yes (Hospitalization)
  Sender: FDA-Public Use
  Company Number: 163-20785-05050413

PATIENT
  Age: 73 Year
  Sex: Male
  Weight: 71.9858 kg

DRUGS (18)
  1. THALOMID [Suspect]
     Indication: MULTIPLE MYELOMA
     Dosage: 200 MG, DAILY, ORAL
     Route: 048
     Dates: start: 20050429
  2. DOXIL [Suspect]
     Indication: MULTIPLE MYELOMA
     Dosage: 70 MG, EVERY 21 DAYS, INTRAVENOUS
     Route: 042
     Dates: start: 20050408
  3. DEXAMETHASONE [Suspect]
     Indication: MULTIPLE MYELOMA
     Dosage: 40 MG, DAILY ON DAYS 1-4, 9-12 + 17-20, ORAL
     Route: 048
     Dates: start: 20050407
  4. ALLOPURINOL [Concomitant]
  5. COLACE (DOCUSATE SODIUM) [Concomitant]
  6. LEXAPRO [Concomitant]
  7. PROTONIX [Concomitant]
  8. VERAPAMIL SR (VERAPAMIL HYDROCHLORIDE) [Concomitant]
  9. VALTREX [Concomitant]
  10. COUMADIN [Concomitant]
  11. BACTRIM [Concomitant]
  12. TOPROL-XL [Concomitant]
  13. INSULIN [Concomitant]
  14. MAGNESIUM OXIDE [Concomitant]
  15. LASIX [Concomitant]
  16. MULTI-VITAMINS [Concomitant]
  17. AREDIA [Concomitant]
  18. FLONASE [Concomitant]

REACTIONS (1)
  - SYNCOPE [None]
